FAERS Safety Report 16790641 (Version 1)
Quarter: 2019Q3

REPORT INFORMATION
  Report Type: Spontaneous
  Country: US (occurrence: US)
  Receive Date: 20190910
  Receipt Date: 20190910
  Transmission Date: 20191005
  Serious: Yes (Other)
  Sender: FDA-Public Use
  Company Number: US-PFIZER INC-2019384714

PATIENT
  Sex: Female

DRUGS (3)
  1. LETROZOLE. [Concomitant]
     Active Substance: LETROZOLE
     Dosage: UNK
  2. IBRANCE [Suspect]
     Active Substance: PALBOCICLIB
     Indication: BREAST CANCER
     Dosage: 125 MG, UNK
  3. FASLODEX [Concomitant]
     Active Substance: FULVESTRANT
     Dosage: UNK

REACTIONS (6)
  - Pain [Unknown]
  - Neoplasm progression [Unknown]
  - Infection [Unknown]
  - Angina pectoris [Unknown]
  - Gait disturbance [Unknown]
  - Seizure [Unknown]

NARRATIVE: CASE EVENT DATE: 201902
